FAERS Safety Report 16150344 (Version 1)
Quarter: 2019Q2

REPORT INFORMATION
  Report Type: Spontaneous
  Country: US (occurrence: US)
  Receive Date: 20190228
  Receipt Date: 20190228
  Transmission Date: 20190711
  Serious: No
  Sender: FDA-Public Use
  Company Number: None

PATIENT
  Age: 62 Year
  Sex: Female

DRUGS (1)
  1. BOTOX [Suspect]
     Active Substance: ONABOTULINUMTOXINA
     Indication: TORTICOLLIS
     Dosage: ?          OTHER DOSE:600 U;OTHER FREQUENCY:OTHER;?
     Route: 030
     Dates: start: 201801

REACTIONS (3)
  - Therapeutic response decreased [None]
  - Intentional product use issue [None]
  - Off label use [None]

NARRATIVE: CASE EVENT DATE: 20190228
